FAERS Safety Report 8475214-4 (Version None)
Quarter: 2012Q2

REPORT INFORMATION
  Report Type: 
  Country: None (occurrence: None)
  Receive Date: 20120628
  Receipt Date: 20120619
  Transmission Date: 20120825
  Serious: Yes (Hospitalization, Other)
  Sender: FDA-Public Use
  Company Number: US-JNJFOC-20120605803

PATIENT
  Sex: Male
  Weight: 51.1 kg

DRUGS (9)
  1. PENTASA [Concomitant]
  2. FERROUS SULFATE TAB [Concomitant]
  3. MERCAPTOPURINE [Concomitant]
  4. REMICADE [Suspect]
     Indication: CROHN'S DISEASE
     Route: 042
     Dates: start: 20120418
  5. REMICADE [Suspect]
     Route: 042
     Dates: start: 20120531
  6. MESALAMINE [Concomitant]
  7. CALCIUM CARBONATE [Concomitant]
  8. VITAMIN D [Concomitant]
  9. REMICADE [Suspect]
     Route: 042
     Dates: start: 20120430

REACTIONS (2)
  - PERIRECTAL ABSCESS [None]
  - YERSINIA INFECTION [None]
